FAERS Safety Report 6749157-8 (Version None)
Quarter: 2010Q2

REPORT INFORMATION
  Report Type: 
  Country: None (occurrence: None)
  Receive Date: 20100601
  Receipt Date: 20100518
  Transmission Date: 20101027
  Serious: Yes (Hospitalization)
  Sender: FDA-Public Use
  Company Number: US-BAYER-201021936NA

PATIENT
  Age: 48 Year
  Sex: Female

DRUGS (2)
  1. BETASERON [Suspect]
     Indication: DRUG USE FOR UNKNOWN INDICATION
     Route: 058
     Dates: start: 19940401, end: 20100101
  2. TYSABRI [Concomitant]

REACTIONS (1)
  - MAMMOPLASTY [None]
